FAERS Safety Report 4526729-2 (Version None)
Quarter: 2004Q4

REPORT INFORMATION
  Report Type: 
  Country: None (occurrence: None)
  Receive Date: 20041213
  Receipt Date: 20041128
  Transmission Date: 20050328
  Serious: Yes (Hospitalization)
  Sender: FDA-Public Use
  Company Number: HQWYE697129NOV04

PATIENT
  Age: 59 Year
  Sex: Male
  Weight: 103 kg

DRUGS (3)
  1. RAPAMUNE [Suspect]
     Indication: PROPHYLAXIS AGAINST TRANSPLANT REJECTION
     Dosage: 5 MG 1X PER 1 DAY, ORAL
     Route: 048
     Dates: end: 20040101
  2. PREDNISONE [Concomitant]
  3. PROGRAF [Concomitant]

REACTIONS (6)
  - DEHYDRATION [None]
  - DISSEMINATED INTRAVASCULAR COAGULATION [None]
  - IMMUNOSUPPRESSANT DRUG LEVEL INCREASED [None]
  - IMPLANT SITE INFECTION [None]
  - PACEMAKER COMPLICATION [None]
  - SEPSIS [None]
